FAERS Safety Report 6542250-4 (Version None)
Quarter: 2010Q1

REPORT INFORMATION
  Report Type: 
  Country: None (occurrence: None)
  Receive Date: 20100119
  Receipt Date: 20100112
  Transmission Date: 20100710
  Serious: Yes (Disabling)
  Sender: FDA-Public Use
  Company Number: D0065848A

PATIENT
  Sex: Female
  Weight: 80 kg

DRUGS (1)
  1. ELMENDOS [Suspect]
     Indication: BIPOLAR DISORDER
     Route: 048
     Dates: start: 20080101

REACTIONS (7)
  - ARTHRALGIA [None]
  - GINGIVAL PAIN [None]
  - GINGIVAL RECESSION [None]
  - GINGIVITIS [None]
  - MYALGIA [None]
  - PERIODONTITIS [None]
  - VISUAL IMPAIRMENT [None]
